FAERS Safety Report 8341255 (Version 3)
Quarter: 2012Q4

REPORT INFORMATION
  Report Type: Report from Study
  Country: FR (occurrence: FR)
  Receive Date: 20120118
  Receipt Date: 20121108
  Transmission Date: 20130627
  Serious: Yes (Death, Life-Threatening, Hospitalization)
  Sender: FDA-Public Use
  Company Number: FR-PFIZER INC-2012010543

PATIENT
  Age: 33 Year
  Sex: Male
  Weight: 72 kg

DRUGS (1)
  1. CRIZOTINIB [Suspect]
     Indication: BRONCHIAL CARCINOMA
     Dosage: 250 mg, 2x/day
     Route: 048
     Dates: start: 20111027, end: 20120113

REACTIONS (3)
  - Septic shock [Fatal]
  - Generalised oedema [Not Recovered/Not Resolved]
  - Ascites [Unknown]
